APPROVED DRUG PRODUCT: BETAMETHASONE VALERATE
Active Ingredient: BETAMETHASONE VALERATE
Strength: EQ 0.1% BASE
Dosage Form/Route: CREAM;TOPICAL
Application: A070053 | Product #001
Applicant: PERRIGO NEW YORK INC
Approved: Jun 10, 1986 | RLD: No | RS: No | Type: DISCN